FAERS Safety Report 8054363-9 (Version None)
Quarter: 2012Q1

REPORT INFORMATION
  Report Type: 
  Country: None (occurrence: None)
  Receive Date: 20120118
  Receipt Date: 20120113
  Transmission Date: 20120608
  Serious: Yes (Death, Other)
  Sender: FDA-Public Use
  Company Number: PHHY2012CZ003635

PATIENT
  Age: 36 Year
  Sex: Male

DRUGS (4)
  1. HYDROXYUREA [Suspect]
     Indication: CHRONIC MYELOID LEUKAEMIA
     Dosage: UNK
  2. IMATINIB MESYLATE [Suspect]
     Indication: CHRONIC MYELOID LEUKAEMIA
     Dosage: UNK UKN, UNK
  3. INTERFERON [Suspect]
     Indication: CHRONIC MYELOID LEUKAEMIA
     Dosage: UNK
  4. BUSULFAN [Suspect]
     Indication: CHRONIC MYELOID LEUKAEMIA

REACTIONS (3)
  - CHRONIC MYELOID LEUKAEMIA [None]
  - SEMINOMA [None]
  - NEOPLASM MALIGNANT [None]
